FAERS Safety Report 8307336-2 (Version None)
Quarter: 2012Q1

REPORT INFORMATION
  Report Type: 
  Country: None (occurrence: None)
  Receive Date: 20120327
  Receipt Date: 20090608
  Transmission Date: 20120608
  Serious: Yes (Other)
  Sender: FDA-Public Use
  Company Number: PHEH2009US03179

PATIENT
  Sex: Female

DRUGS (1)
  1. GLEEVEC [Suspect]
     Indication: CHRONIC MYELOID LEUKAEMIA
     Dosage: 300 MG, QD, ORAL
     Route: 048
     Dates: start: 20010901

REACTIONS (2)
  - PAIN IN EXTREMITY [None]
  - DEEP VEIN THROMBOSIS [None]
